FAERS Safety Report 8951859 (Version 1)
Quarter: 2012Q4

REPORT INFORMATION
  Report Type: 
  Country: US (occurrence: US)
  Receive Date: 20121204
  Receipt Date: 20121204
  Transmission Date: 20130627
  Serious: No
  Sender: FDA-Public Use
  Company Number: US-AMGEN-USASP2012067712

PATIENT
  Sex: Female
  Weight: 56.24 kg

DRUGS (3)
  1. ENBREL [Suspect]
     Indication: PSORIATIC ARTHROPATHY
     Dosage: 50 mg, qwk
     Route: 058
     Dates: start: 201205, end: 20121008
  2. ENBREL [Suspect]
     Indication: POLYARTHRITIS
  3. TOPICORT                           /00028604/ [Concomitant]
     Dosage: UNK

REACTIONS (1)
  - Pustular psoriasis [Not Recovered/Not Resolved]
